FAERS Safety Report 4915233-5 (Version None)
Quarter: 2006Q1

REPORT INFORMATION
  Report Type: 
  Country: None (occurrence: None)
  Receive Date: 20060216
  Receipt Date: 20060216
  Transmission Date: 20060701
  Serious: Yes (Hospitalization)
  Sender: FDA-Public Use
  Company Number: None

PATIENT
  Age: 74 Year
  Sex: Male

DRUGS (3)
  1. FUROSEMIDE [Suspect]
     Indication: CARDIAC FAILURE CONGESTIVE
     Dosage: 80 MG BID PO     DISCHARGED ON THESE DOSES ON 10/7
     Route: 048
  2. FUROSEMIDE [Suspect]
     Indication: EJECTION FRACTION DECREASED
     Dosage: 80 MG BID PO     DISCHARGED ON THESE DOSES ON 10/7
     Route: 048
  3. METOLAZONE [Suspect]
     Dosage: 5 MG QD PO
     Route: 048

REACTIONS (4)
  - BLOOD PRESSURE ORTHOSTATIC ABNORMAL [None]
  - DEHYDRATION [None]
  - POLYURIA [None]
  - SYNCOPE [None]
